FAERS Safety Report 20480728 (Version 1)
Quarter: 2022Q1

REPORT INFORMATION
  Report Type: Spontaneous
  Country: US (occurrence: US)
  Receive Date: 20220216
  Receipt Date: 20220216
  Transmission Date: 20220423
  Serious: No
  Sender: FDA-Public Use
  Company Number: US-PFIZER INC-202200163488

PATIENT
  Age: 28 Year
  Sex: Male

DRUGS (2)
  1. HYDROXYZINE PAMOATE [Suspect]
     Active Substance: HYDROXYZINE PAMOATE
     Indication: Autism spectrum disorder
     Dosage: UNK, 3X/DAY (3 DOSES IN A DAY)
  2. HYDROXYZINE PAMOATE [Suspect]
     Active Substance: HYDROXYZINE PAMOATE
     Indication: Bipolar disorder
     Dosage: 25 MG, 3X/DAY

REACTIONS (9)
  - Intentional dose omission [Unknown]
  - Product dose omission issue [Unknown]
  - Lip disorder [Unknown]
  - Mephisto sign [Unknown]
  - Aggression [Unknown]
  - Dysphonia [Unknown]
  - Impulse-control disorder [Unknown]
  - Anger [Unknown]
  - Memory impairment [Unknown]
